FAERS Safety Report 13137597 (Version 1)
Quarter: 2017Q1

REPORT INFORMATION
  Report Type: Spontaneous
  Country: US (occurrence: US)
  Receive Date: 20170122
  Receipt Date: 20170122
  Transmission Date: 20170428
  Serious: Yes (Hospitalization)
  Sender: FDA-Public Use
  Company Number: None

PATIENT
  Age: 47 Year
  Sex: Female
  Weight: 80.8 kg

DRUGS (1)
  1. REGORAFENIB 80MG, 120MG [Suspect]
     Active Substance: REGORAFENIB
     Indication: COLON CANCER METASTATIC
     Dosage: 80MG 7 DAYS; 3 DAYS ORAL
     Route: 048
     Dates: start: 20170106, end: 20170115

REACTIONS (4)
  - Abdominal pain [None]
  - Nausea [None]
  - Vomiting [None]
  - Bone pain [None]

NARRATIVE: CASE EVENT DATE: 20170120
